FAERS Safety Report 12875537 (Version 1)
Quarter: 2016Q4

REPORT INFORMATION
  Report Type: Spontaneous
  Country: CN (occurrence: CN)
  Receive Date: 20161024
  Receipt Date: 20161024
  Transmission Date: 20170207
  Serious: Yes (Hospitalization)
  Sender: FDA-Public Use
  Company Number: CN-ACCORD-045005

PATIENT
  Age: 62 Year
  Sex: Female

DRUGS (1)
  1. MITOMYCIN. [Suspect]
     Active Substance: MITOMYCIN
     Indication: PRODUCT USED FOR UNKNOWN INDICATION
     Dosage: STRENGTH: 0.25 MG/ML

REACTIONS (1)
  - Corneal epithelial microcysts [Recovered/Resolved]
